FAERS Safety Report 4651637-6 (Version None)
Quarter: 2005Q2

REPORT INFORMATION
  Report Type: 
  Country: None (occurrence: None)
  Receive Date: 20050502
  Receipt Date: 20050414
  Transmission Date: 20051028
  Serious: Yes (Death, Hospitalization)
  Sender: FDA-Public Use
  Company Number: 2005BI003371

PATIENT
  Age: 49 Year
  Sex: Female
  Weight: 92.9874 kg

DRUGS (10)
  1. AMEVIVE [Suspect]
     Indication: PSORIASIS
     Dosage: SEE IMAGE
     Route: 042
     Dates: end: 20040120
  2. AMEVIVE [Suspect]
     Indication: PSORIASIS
     Dosage: SEE IMAGE
     Route: 042
     Dates: start: 20030721
  3. SYNTHROID [Concomitant]
  4. LEVAQUIN [Concomitant]
  5. TYLENOL W/ CODEINE NO. 3 [Concomitant]
  6. WELLBUTRIN [Concomitant]
  7. ATIVAN [Concomitant]
  8. ZOLOFT [Concomitant]
  9. ALDACTONE [Concomitant]
  10. LASIX [Concomitant]

REACTIONS (28)
  - ACTIVATED PARTIAL THROMBOPLASTIN TIME PROLONGED [None]
  - ANAEMIA [None]
  - ASCITES [None]
  - ASTHENIA [None]
  - BLOOD ALBUMIN DECREASED [None]
  - BLOOD BICARBONATE DECREASED [None]
  - BLOOD PRESSURE DIASTOLIC DECREASED [None]
  - BLOOD SODIUM DECREASED [None]
  - BRONCHITIS [None]
  - CARDIAC ARREST [None]
  - DYSPHONIA [None]
  - DYSPNOEA [None]
  - ENCEPHALOPATHY [None]
  - FALL [None]
  - FATIGUE [None]
  - GASTRIC VARICES [None]
  - GASTROINTESTINAL HAEMORRHAGE [None]
  - HEART VALVE INSUFFICIENCY [None]
  - HEPATIC FAILURE [None]
  - HEPATORENAL SYNDROME [None]
  - INTERNATIONAL NORMALISED RATIO INCREASED [None]
  - MENTAL STATUS CHANGES [None]
  - OEDEMA [None]
  - OXYGEN SATURATION DECREASED [None]
  - PAIN [None]
  - PNEUMONIA [None]
  - RENAL FAILURE ACUTE [None]
  - RESPIRATORY RATE INCREASED [None]
